FAERS Safety Report 7242214 (Version 4)
Quarter: 2020Q1

REPORT INFORMATION
  Report Type: Report from Study
  Country: US (occurrence: US)
  Receive Date: 20100111
  Receipt Date: 20200103
  Transmission Date: 20200409
  Serious: Yes (Death, Life-Threatening, Other)
  Sender: FDA-Public Use
  Company Number: PHHO2009US11908

PATIENT
  Age: 60 Year
  Sex: Female
  Weight: 52.2 kg

DRUGS (10)
  1. ZORTRESS [Suspect]
     Active Substance: EVEROLIMUS
     Indication: NEUROENDOCRINE CARCINOMA
     Dosage: 10 MG, QD
     Route: 048
     Dates: start: 20090819, end: 20091209
  2. OCTREOTIDE. [Concomitant]
     Active Substance: OCTREOTIDE
     Indication: PRODUCT USED FOR UNKNOWN INDICATION
     Route: 065
  3. OMEPRAZOLE. [Concomitant]
     Active Substance: OMEPRAZOLE
     Indication: PRODUCT USED FOR UNKNOWN INDICATION
     Route: 065
  4. CREON [Concomitant]
     Active Substance: PANCRELIPASE AMYLASE\PANCRELIPASE LIPASE\PANCRELIPASE PROTEASE
     Indication: PRODUCT USED FOR UNKNOWN INDICATION
     Route: 065
  5. PROPRANOLOL [Concomitant]
     Active Substance: PROPRANOLOL HYDROCHLORIDE
     Indication: PRODUCT USED FOR UNKNOWN INDICATION
     Route: 065
  6. SORAFENIB [Suspect]
     Active Substance: SORAFENIB
     Indication: NEUROENDOCRINE CARCINOMA
     Dosage: 200 MG, BID
     Route: 048
     Dates: start: 20090819, end: 20090912
  7. RALOXIFENE. [Concomitant]
     Active Substance: RALOXIFENE
     Indication: PRODUCT USED FOR UNKNOWN INDICATION
     Route: 065
  8. IBUPROFEN. [Concomitant]
     Active Substance: IBUPROFEN
     Indication: PRODUCT USED FOR UNKNOWN INDICATION
     Route: 065
  9. ACYCLOVIR. [Concomitant]
     Active Substance: ACYCLOVIR
     Indication: PRODUCT USED FOR UNKNOWN INDICATION
     Route: 065
  10. ATIVAN [Concomitant]
     Active Substance: LORAZEPAM
     Indication: PRODUCT USED FOR UNKNOWN INDICATION
     Route: 065

REACTIONS (10)
  - Weight decreased [Recovered/Resolved]
  - Burning sensation [Unknown]
  - Malignant neoplasm progression [Fatal]
  - Diarrhoea [Recovered/Resolved]
  - Pain [Unknown]
  - Hypophosphataemia [Recovered/Resolved]
  - Hypocalcaemia [Recovered/Resolved]
  - Herpes zoster [Recovered/Resolved]
  - Electrolyte imbalance [Recovered/Resolved]
  - Hypokalaemia [Unknown]

NARRATIVE: CASE EVENT DATE: 20090911
